FAERS Safety Report 5266674-0 (Version None)
Quarter: 2007Q1

REPORT INFORMATION
  Report Type: 
  Country: None (occurrence: None)
  Receive Date: 20070312
  Receipt Date: 20070226
  Transmission Date: 20070707
  Serious: Yes (Life-Threatening)
  Sender: FDA-Public Use
  Company Number: T200700267

PATIENT
  Age: 85 Year
  Sex: Female

DRUGS (1)
  1. OPTIRAY 320 [Suspect]
     Indication: COMPUTERISED TOMOGRAM THORAX
     Dosage: 60 ML, SINGLE, INTRAVENOUS
     Route: 042
     Dates: start: 20070115, end: 20070115

REACTIONS (4)
  - ANAPHYLACTIC SHOCK [None]
  - FEELING ABNORMAL [None]
  - PALLOR [None]
  - YAWNING [None]
